FAERS Safety Report 5147177-0 (Version None)
Quarter: 2006Q4

REPORT INFORMATION
  Report Type: 
  Country: None (occurrence: None)
  Receive Date: 20061103
  Receipt Date: 20061026
  Transmission Date: 20070319
  Serious: Yes (Hospitalization)
  Sender: FDA-Public Use
  Company Number: HQWYE661127OCT06

PATIENT
  Age: 60 Year
  Sex: Male

DRUGS (6)
  1. CORDARONE [Suspect]
     Indication: MYOCARDIAL ISCHAEMIA
     Dosage: 200 MG 3X PER 1 DAY, ORAL
     Route: 048
     Dates: start: 20060701, end: 20060101
  2. AMIODARONE MERCK (AMIODARONE, ) [Suspect]
     Indication: MYOCARDIAL ISCHAEMIA
     Dosage: 150 MG 1X PER 1 DAY, INTRAVENOUS
     Route: 042
     Dates: start: 20060701, end: 20060701
  3. ARGININE ASPARTATE [Concomitant]
  4. ARGININE GLUTAMATE [Concomitant]
  5. SPIRONOLACTONE [Concomitant]
  6. DIGOXIN [Concomitant]

REACTIONS (3)
  - CONDITION AGGRAVATED [None]
  - DERMATITIS ALLERGIC [None]
  - STEVENS-JOHNSON SYNDROME [None]
